FAERS Safety Report 17401642 (Version 2)
Quarter: 2020Q1

REPORT INFORMATION
  Report Type: Spontaneous
  Country: PH (occurrence: PH)
  Receive Date: 20200211
  Receipt Date: 20200218
  Transmission Date: 20200409
  Serious: Yes (Death, Other)
  Sender: FDA-Public Use
  Company Number: PH-009507513-2002PHL002427

PATIENT
  Age: 72 Year
  Sex: Male

DRUGS (1)
  1. KEYTRUDA [Suspect]
     Active Substance: PEMBROLIZUMAB
     Indication: SQUAMOUS CELL CARCINOMA OF LUNG
     Dosage: 200 MILLIGRAM, Q3W (STRENGTH: 2 VIAL)
     Route: 042
     Dates: start: 20191108, end: 20191108

REACTIONS (1)
  - Death [Fatal]

NARRATIVE: CASE EVENT DATE: 20191122
